FAERS Safety Report 6501535-8 (Version None)
Quarter: 2009Q4

REPORT INFORMATION
  Report Type: 
  Country: None (occurrence: None)
  Receive Date: 20091216
  Receipt Date: 20091209
  Transmission Date: 20100525
  Serious: Yes (Hospitalization)
  Sender: FDA-Public Use
  Company Number: B0604147A

PATIENT
  Sex: Female

DRUGS (9)
  1. ARIXTRA [Suspect]
     Route: 058
     Dates: start: 20091021, end: 20091024
  2. CORTANCYL [Concomitant]
     Indication: DRUG USE FOR UNKNOWN INDICATION
     Dosage: 4MG PER DAY
     Route: 048
  3. KARDEGIC [Concomitant]
     Indication: DRUG USE FOR UNKNOWN INDICATION
     Dosage: 75MG PER DAY
     Route: 048
  4. TENSTATEN [Concomitant]
     Indication: DRUG USE FOR UNKNOWN INDICATION
     Dosage: 2CAP TWICE PER DAY
     Route: 048
  5. SIMVASTATIN [Concomitant]
     Indication: DRUG USE FOR UNKNOWN INDICATION
     Dosage: 1UNIT PER DAY
     Route: 065
  6. FOSAVANCE [Concomitant]
     Indication: DRUG USE FOR UNKNOWN INDICATION
     Dosage: 1UNIT WEEKLY
     Route: 065
  7. DAFALGAN [Concomitant]
     Indication: DRUG USE FOR UNKNOWN INDICATION
     Route: 065
  8. GINKOR [Concomitant]
     Indication: DRUG USE FOR UNKNOWN INDICATION
     Route: 065
  9. PYOSTACINE [Concomitant]
     Dosage: 2UNIT TWICE PER DAY
     Route: 048
     Dates: start: 20091021

REACTIONS (9)
  - HAEMATOMA [None]
  - HAEMOGLOBIN DECREASED [None]
  - MUSCLE NECROSIS [None]
  - PAIN [None]
  - PALLOR [None]
  - PLATELET COUNT INCREASED [None]
  - SKIN DISORDER [None]
  - SKIN NECROSIS [None]
  - WHITE BLOOD CELL COUNT INCREASED [None]
